FAERS Safety Report 8076189-2 (Version None)
Quarter: 2012Q1

REPORT INFORMATION
  Report Type: 
  Country: None (occurrence: None)
  Receive Date: 20120125
  Receipt Date: 20120125
  Transmission Date: 20120608
  Serious: No
  Sender: FDA-Public Use
  Company Number: None

PATIENT
  Age: 65 Year
  Sex: Male
  Weight: 85.9 kg

DRUGS (1)
  1. TRAVOPROST [Suspect]
     Indication: GLAUCOMA
     Dosage: 1 DROPS AT BEDTIME EYE
     Dates: start: 20110805, end: 20120112

REACTIONS (2)
  - CORNEAL DISORDER [None]
  - CONJUNCTIVITIS ALLERGIC [None]
